FAERS Safety Report 20676503 (Version 1)
Quarter: 2022Q2

REPORT INFORMATION
  Report Type: Spontaneous
  Country: US (occurrence: US)
  Receive Date: 20220405
  Receipt Date: 20220405
  Transmission Date: 20220721
  Serious: Yes (Death, Other)
  Sender: FDA-Public Use
  Company Number: US-AMGEN-USASP2022057363

PATIENT
  Age: 41 Year
  Sex: Female

DRUGS (4)
  1. RITUXIMAB [Suspect]
     Active Substance: RITUXIMAB
     Indication: Non-Hodgkin^s lymphoma
     Dosage: 375 MILLIGRAM/SQ. METER, QW FOR 4 WEEKSK
     Route: 065
  2. IBRUTINIB [Concomitant]
     Active Substance: IBRUTINIB
     Indication: Non-Hodgkin^s lymphoma
     Dosage: 480 MILLIGRAM
  3. IBRUTINIB [Concomitant]
     Active Substance: IBRUTINIB
     Dosage: 140 MILLIGRAM
  4. IBRUTINIB [Concomitant]
     Active Substance: IBRUTINIB
     Dosage: 280 MILLIGRAM

REACTIONS (8)
  - Death [Fatal]
  - Pericardial effusion [Unknown]
  - Escherichia sepsis [Unknown]
  - Upper gastrointestinal haemorrhage [Unknown]
  - Pleural effusion [Unknown]
  - Acute kidney injury [Unknown]
  - Cardiac failure [Unknown]
  - Therapy partial responder [Unknown]
